FAERS Safety Report 9369271 (Version 1)
Quarter: 2013Q2

REPORT INFORMATION
  Report Type: Spontaneous
  Country: US (occurrence: None)
  Receive Date: 20130625
  Receipt Date: 20130625
  Transmission Date: 20140414
  Serious: No
  Sender: FDA-Public Use
  Company Number: None

PATIENT
  Age: 66 Year
  Sex: Male
  Weight: 90.72 kg

DRUGS (1)
  1. SPIRIVA [Suspect]
     Indication: CHRONIC OBSTRUCTIVE PULMONARY DISEASE
     Dosage: ONE PER DAY??MARCH, APRIL, MAY 2013
     Route: 055
     Dates: start: 201303

REACTIONS (4)
  - Choking [None]
  - Muscle spasms [None]
  - Capsule physical issue [None]
  - Cough [None]
